FAERS Safety Report 16423282 (Version 2)
Quarter: 2020Q2

REPORT INFORMATION
  Report Type: Spontaneous
  Country: US (occurrence: US)
  Receive Date: 20190612
  Receipt Date: 20200402
  Transmission Date: 20200713
  Serious: No
  Sender: FDA-Public Use
  Company Number: US-AMGEN-USASP2019091351

PATIENT
  Age: 63 Year
  Sex: Female

DRUGS (12)
  1. BUTALBITAL [Concomitant]
     Active Substance: BUTALBITAL
     Dosage: UNK
  2. CYMBALTA [Concomitant]
     Active Substance: DULOXETINE HYDROCHLORIDE
     Indication: FIBROMYALGIA
  3. CYMBALTA [Concomitant]
     Active Substance: DULOXETINE HYDROCHLORIDE
     Indication: ANXIETY
  4. CYMBALTA [Concomitant]
     Active Substance: DULOXETINE HYDROCHLORIDE
     Indication: DEPRESSION
  5. XANAX [Concomitant]
     Active Substance: ALPRAZOLAM
     Indication: ANXIETY
     Dosage: UNK
  6. AIMOVIG [Suspect]
     Active Substance: ERENUMAB-AOOE
     Indication: MIGRAINE
     Dosage: UNK UNK, QMO
     Route: 065
     Dates: start: 20190512
  7. BOTOX [Concomitant]
     Active Substance: ONABOTULINUMTOXINA
     Dosage: UNK
  8. DEXILANT [Concomitant]
     Active Substance: DEXLANSOPRAZOLE
     Indication: GASTROOESOPHAGEAL REFLUX DISEASE
     Dosage: UNK
  9. PHENERGAN [Concomitant]
     Active Substance: PROMETHAZINE HYDROCHLORIDE
     Indication: NAUSEA
     Dosage: UNK
  10. FENTANYL. [Concomitant]
     Active Substance: FENTANYL
     Indication: IRRITABLE BOWEL SYNDROME
     Dosage: UNK, AS NECESSARY
  11. ZOMIG [Concomitant]
     Active Substance: ZOLMITRIPTAN
     Dosage: UNK (SPRAY)
  12. CYMBALTA [Concomitant]
     Active Substance: DULOXETINE HYDROCHLORIDE
     Indication: ARTHRITIS
     Dosage: 90 MILLIGRAM

REACTIONS (4)
  - Constipation [Recovering/Resolving]
  - Drug ineffective [Unknown]
  - Influenza like illness [Recovering/Resolving]
  - Muscle spasms [Recovering/Resolving]

NARRATIVE: CASE EVENT DATE: 2019
